FAERS Safety Report 5164963-1 (Version None)
Quarter: 2006Q4

REPORT INFORMATION
  Report Type: 
  Country: None (occurrence: None)
  Receive Date: 20061127
  Receipt Date: 20061115
  Transmission Date: 20070319
  Serious: Yes (Other)
  Sender: FDA-Public Use
  Company Number: 2006SP006656

PATIENT
  Age: 55 Year
  Sex: Male

DRUGS (2)
  1. PEG-INTRON [Suspect]
     Indication: HEPATITIS C
     Dosage: SC
     Route: 058
     Dates: start: 20060801
  2. REBETOL [Suspect]
     Indication: HEPATITIS C
     Dosage: PO
     Route: 048
     Dates: start: 20060801

REACTIONS (6)
  - ACNE [None]
  - GASTRIC DISORDER [None]
  - HAEMATEMESIS [None]
  - IMPAIRED HEALING [None]
  - VOMITING [None]
  - WHITE BLOOD CELL COUNT DECREASED [None]
